FAERS Safety Report 7589284-9 (Version None)
Quarter: 2011Q3

REPORT INFORMATION
  Report Type: 
  Country: None (occurrence: None)
  Receive Date: 20110705
  Receipt Date: 20110616
  Transmission Date: 20111222
  Serious: Yes (Hospitalization, Other)
  Sender: FDA-Public Use
  Company Number: US-BAYER-2011-004427

PATIENT
  Age: 31 Year
  Sex: Female
  Weight: 85 kg

DRUGS (7)
  1. YAZ [Suspect]
     Indication: DYSMENORRHOEA
  2. YAZ [Suspect]
     Indication: MENORRHAGIA
  3. YAZ [Suspect]
     Indication: CONTRACEPTION
     Dosage: UNK
     Dates: start: 20080801, end: 20081223
  4. YASMIN [Suspect]
     Indication: DYSMENORRHOEA
  5. YASMIN [Suspect]
     Indication: CONTRACEPTION
     Dosage: UNK
     Dates: start: 20040101, end: 20060701
  6. YASMIN [Suspect]
     Indication: MENORRHAGIA
  7. ADDERALL XR 10 [Concomitant]

REACTIONS (9)
  - PORTAL VEIN THROMBOSIS [None]
  - POST CHOLECYSTECTOMY SYNDROME [None]
  - PAIN [None]
  - ANXIETY [None]
  - NAUSEA [None]
  - ABDOMINAL PAIN [None]
  - VOMITING [None]
  - GALLBLADDER DISORDER [None]
  - INJURY [None]
